FAERS Safety Report 23344754 (Version 1)
Quarter: 2023Q4

REPORT INFORMATION
  Report Type: Spontaneous
  Country: IT (occurrence: IT)
  Receive Date: 20231228
  Receipt Date: 20231228
  Transmission Date: 20240110
  Serious: Yes (Disabling)
  Sender: FDA-Public Use
  Company Number: None

PATIENT
  Age: 55 Year
  Weight: 56 kg

DRUGS (8)
  1. OLANZAPINE [Suspect]
     Active Substance: OLANZAPINE
     Indication: Psychomotor hyperactivity
     Dosage: 5 MG X 2 TIMES/DAY
     Route: 048
     Dates: start: 20220729, end: 20220917
  2. VALPROIC ACID [Concomitant]
     Active Substance: VALPROIC ACID
  3. TRAZODONE HYDROCHLORIDE [Concomitant]
     Active Substance: TRAZODONE HYDROCHLORIDE
  4. RISPERIDONE [Suspect]
     Active Substance: RISPERIDONE
     Indication: Psychomotor hyperactivity
     Dosage: 0.5 G + 1 G
     Route: 048
     Dates: start: 20230104, end: 20231013
  5. HALOPERIDOL [Concomitant]
     Active Substance: HALOPERIDOL
  6. VALIUM [Concomitant]
     Active Substance: DIAZEPAM
  7. TALOFEN [Suspect]
     Active Substance: PROMAZINE HYDROCHLORIDE
     Indication: Psychomotor hyperactivity
     Dosage: 15-20 DROPS THREE TIMES A DAY, THEN REDUCED TO 5/10 DROPS PER DAY
     Route: 048
     Dates: start: 20220729, end: 20230902
  8. RIVOTRIL [Concomitant]
     Active Substance: CLONAZEPAM

REACTIONS (1)
  - Disability [Not Recovered/Not Resolved]
